FAERS Safety Report 4318469-X (Version None)
Quarter: 2004Q1

REPORT INFORMATION
  Report Type: 
  Country: None (occurrence: None)
  Receive Date: 20040317
  Receipt Date: 20040317
  Transmission Date: 20041129
  Serious: No
  Sender: FDA-Public Use
  Company Number: None

PATIENT
  Age: 30 Year
  Sex: Female
  Weight: 51.7101 kg

DRUGS (1)
  1. ETHINYL ESTRADIOL AND NORETHINDRONE [Suspect]
     Indication: CONTRACEPTION

REACTIONS (4)
  - DRUG INTOLERANCE [None]
  - NAUSEA [None]
  - PHARMACEUTICAL PRODUCT COMPLAINT [None]
  - VOMITING [None]
